FAERS Safety Report 21138170 (Version 1)
Quarter: 2022Q3

REPORT INFORMATION
  Report Type: Spontaneous
  Country: JP (occurrence: JP)
  Receive Date: 20220727
  Receipt Date: 20220727
  Transmission Date: 20221026
  Serious: Yes (Death)
  Sender: FDA-Public Use
  Company Number: JP-PFIZER INC-PV202200026353

PATIENT
  Age: 3 Decade
  Sex: Female
  Weight: 62.1 kg

DRUGS (8)
  1. ALPRAZOLAM [Suspect]
     Active Substance: ALPRAZOLAM
  2. CHLORPHENIRAMINE [Suspect]
     Active Substance: CHLORPHENIRAMINE
  3. OLANZAPINE [Suspect]
     Active Substance: OLANZAPINE
  4. PEMOLINE [Suspect]
     Active Substance: PEMOLINE
  5. CHLORPROMAZINE [Suspect]
     Active Substance: CHLORPROMAZINE
  6. DIHYDROCODEINE [Suspect]
     Active Substance: DIHYDROCODEINE
  7. EPHEDRINE [Suspect]
     Active Substance: EPHEDRINE
  8. ESCITALOPRAM [Suspect]
     Active Substance: ESCITALOPRAM OXALATE

REACTIONS (2)
  - Overdose [Fatal]
  - Toxicity to various agents [Fatal]
